FAERS Safety Report 5779818-9 (Version None)
Quarter: 2008Q2

REPORT INFORMATION
  Report Type: 
  Country: None (occurrence: None)
  Receive Date: 20080620
  Receipt Date: 20080611
  Transmission Date: 20081010
  Serious: Yes (Other)
  Sender: FDA-Public Use
  Company Number: US-RANBAXY-2008RR-15938

PATIENT

DRUGS (1)
  1. MINOCYCLINE HYDROCHLORIDE [Suspect]
     Dosage: 200 MG, UNK

REACTIONS (3)
  - ALVEOLITIS [None]
  - ERYTHEMA NODOSUM [None]
  - SKIN HYPERPIGMENTATION [None]
